FAERS Safety Report 7377316-2 (Version None)
Quarter: 2011Q1

REPORT INFORMATION
  Report Type: 
  Country: None (occurrence: None)
  Receive Date: 20110317
  Receipt Date: 20110308
  Transmission Date: 20110831
  Serious: Yes (Hospitalization)
  Sender: FDA-Public Use
  Company Number: 2010SP060610

PATIENT
  Age: 45 Year
  Sex: Female

DRUGS (4)
  1. ALIMTA [Suspect]
     Indication: NEOPLASM
     Dosage: 740 MG; Q3W; IV
     Route: 042
     Dates: start: 20101006, end: 20101006
  2. CISPLATIN [Suspect]
     Indication: NEOPLASM
     Dosage: 111 MG; Q3W; IV
     Route: 042
     Dates: start: 20101006, end: 20101006
  3. DEXAMETHASONE [Suspect]
     Indication: PROPHYLAXIS
     Dosage: 4 MG; BID; PO
     Route: 048
     Dates: start: 20101006, end: 20101011
  4. DEXAMETHASONE [Suspect]
     Indication: NEOPLASM
     Dosage: 18 MG; IV
     Route: 042
     Dates: start: 20100922, end: 20101008

REACTIONS (4)
  - DEPRESSION [None]
  - ANXIETY [None]
  - MOOD ALTERED [None]
  - SUICIDAL IDEATION [None]
